FAERS Safety Report 9123089 (Version 1)
Quarter: 2013Q1

REPORT INFORMATION
  Report Type: Spontaneous
  Country: US (occurrence: US)
  Receive Date: 20130115
  Receipt Date: 20130115
  Transmission Date: 20140127
  Serious: Yes (Other)
  Sender: FDA-Public Use
  Company Number: US-BAYER-2013-003633

PATIENT
  Age: 52 Year
  Sex: Male
  Weight: 90.7 kg

DRUGS (5)
  1. ALKA-SELTZER PLUS COLD + COUGH [Suspect]
     Indication: NASOPHARYNGITIS
     Dosage: 2 DF, Q4HR
     Route: 048
     Dates: start: 20121230, end: 20121231
  2. BAYER ASPIRIN REGIMEN ADULT LOW STRENGTH [Concomitant]
  3. TOPROL [Concomitant]
  4. FISH OIL [Concomitant]
  5. LIPITOR [Concomitant]

REACTIONS (4)
  - Urinary tract infection [Recovered/Resolved]
  - Back pain [Recovered/Resolved]
  - Back pain [Recovered/Resolved]
  - Chromaturia [Recovered/Resolved]
